FAERS Safety Report 17667017 (Version 1)
Quarter: 2020Q2

REPORT INFORMATION
  Report Type: Spontaneous
  Country: US (occurrence: US)
  Receive Date: 20200414
  Receipt Date: 20200414
  Transmission Date: 20200713
  Serious: No
  Sender: FDA-Public Use
  Company Number: US-ASTELLAS-2019US034798

PATIENT
  Sex: Male

DRUGS (1)
  1. TACROLIMUS. [Suspect]
     Active Substance: TACROLIMUS
     Indication: COLITIS ULCERATIVE
     Dosage: UNK UNK, UNKNOWN FREQ. (SUPPOSITORIES)
     Route: 065
     Dates: start: 201904, end: 201907

REACTIONS (1)
  - Drug ineffective for unapproved indication [Unknown]
